FAERS Safety Report 9110300 (Version 2)
Quarter: 2013Q2

REPORT INFORMATION
  Report Type: Spontaneous
  Country: US (occurrence: US)
  Receive Date: 20130222
  Receipt Date: 20130514
  Transmission Date: 20140414
  Serious: No
  Sender: FDA-Public Use
  Company Number: US-TEVA-385660USA

PATIENT
  Sex: 0

DRUGS (1)
  1. QNASL [Suspect]

REACTIONS (1)
  - Headache [Recovered/Resolved]
